FAERS Safety Report 19243238 (Version 1)
Quarter: 2021Q2

REPORT INFORMATION
  Report Type: Spontaneous
  Country: CA (occurrence: CA)
  Receive Date: 20210511
  Receipt Date: 20210511
  Transmission Date: 20210717
  Serious: Yes (Other)
  Sender: FDA-Public Use
  Company Number: CA-ROCHE-2825554

PATIENT
  Age: 60 Year
  Sex: Female
  Weight: 75 kg

DRUGS (16)
  1. ERGOCALCIFEROL. [Concomitant]
     Active Substance: ERGOCALCIFEROL
  2. METHOTREXATE. [Concomitant]
     Active Substance: METHOTREXATE
     Route: 058
  3. RISEDRONATE SODIUM. [Concomitant]
     Active Substance: RISEDRONATE SODIUM
  4. NAPROXEN. [Suspect]
     Active Substance: NAPROXEN
     Indication: PRODUCT USED FOR UNKNOWN INDICATION
     Route: 065
  5. ACETAMINOPHEN. [Concomitant]
     Active Substance: ACETAMINOPHEN
     Indication: PRODUCT USED FOR UNKNOWN INDICATION
     Route: 048
  6. METHYLPREDNISOLONE. [Concomitant]
     Active Substance: METHYLPREDNISOLONE
     Route: 042
  7. ACETAMINOPHEN. [Concomitant]
     Active Substance: ACETAMINOPHEN
     Route: 048
  8. CALCIUM D [Concomitant]
     Active Substance: CALCIUM\VITAMIN D
     Route: 065
  9. DIOVAN [Concomitant]
     Active Substance: VALSARTAN
  10. DIPHENHYDRAMINE HYDROCHLORIDE. [Concomitant]
     Active Substance: DIPHENHYDRAMINE HYDROCHLORIDE
     Route: 048
  11. TYLENOL [Concomitant]
     Active Substance: ACETAMINOPHEN
  12. RITUXIMAB. [Suspect]
     Active Substance: RITUXIMAB
     Indication: RHEUMATOID ARTHRITIS
     Route: 042
  13. MAGNESIUM [Concomitant]
     Active Substance: MAGNESIUM
     Route: 065
  14. ESOMEPRAZOLE MAGNESIUM TRIHYDRATE [Suspect]
     Active Substance: ESOMEPRAZOLE MAGNESIUM
     Indication: PRODUCT USED FOR UNKNOWN INDICATION
     Route: 048
  15. FOLIC ACID. [Concomitant]
     Active Substance: FOLIC ACID
  16. ROSUVASTATIN. [Concomitant]
     Active Substance: ROSUVASTATIN
     Route: 058

REACTIONS (16)
  - Ill-defined disorder [Not Recovered/Not Resolved]
  - Nausea [Not Recovered/Not Resolved]
  - Platelet count increased [Not Recovered/Not Resolved]
  - C-reactive protein increased [Not Recovered/Not Resolved]
  - Pain [Not Recovered/Not Resolved]
  - Synovial cyst [Not Recovered/Not Resolved]
  - Osteoarthritis [Not Recovered/Not Resolved]
  - Spinal flattening [Not Recovered/Not Resolved]
  - Blood pressure increased [Not Recovered/Not Resolved]
  - Rheumatoid arthritis [Not Recovered/Not Resolved]
  - Spinal osteoarthritis [Not Recovered/Not Resolved]
  - Cough [Not Recovered/Not Resolved]
  - Chronic myeloid leukaemia [Not Recovered/Not Resolved]
  - Weight increased [Not Recovered/Not Resolved]
  - Intervertebral disc degeneration [Not Recovered/Not Resolved]
  - Swelling [Not Recovered/Not Resolved]
